FAERS Safety Report 7499866-0 (Version None)
Quarter: 2011Q2

REPORT INFORMATION
  Report Type: 
  Country: None (occurrence: None)
  Receive Date: 20110524
  Receipt Date: 20110303
  Transmission Date: 20111010
  Serious: No
  Sender: FDA-Public Use
  Company Number: US-NOVEN-11US001912

PATIENT
  Sex: Male

DRUGS (3)
  1. SYNTHROID [Concomitant]
     Indication: HYPOTHYROIDISM
     Route: 048
  2. GUANFACINE HYDROCHLORIDE [Concomitant]
     Indication: TIC
     Dosage: UNK
     Route: 048
  3. DAYTRANA [Suspect]
     Indication: ASPERGER'S DISORDER
     Dosage: 30 MG/9HR/DAY
     Route: 062

REACTIONS (5)
  - DRUG ADMINISTRATION ERROR [None]
  - PRODUCT QUALITY ISSUE [None]
  - OFF LABEL USE [None]
  - DRUG DOSE OMISSION [None]
  - NO ADVERSE EVENT [None]
